FAERS Safety Report 23616545 (Version 3)
Quarter: 2024Q4

REPORT INFORMATION
  Report Type: Report from Study
  Country: IN (occurrence: IN)
  Receive Date: 20240311
  Receipt Date: 20241115
  Transmission Date: 20250115
  Serious: Yes (Other)
  Sender: NOVARTIS
  Company Number: IN-002147023-NVSC2024IN008069

PATIENT
  Sex: Male

DRUGS (3)
  1. TASIGNA [Suspect]
     Active Substance: NILOTINIB
     Indication: Chronic myeloid leukaemia
     Dosage: 150 MG, BID
     Route: 048
     Dates: start: 20170525
  2. TASIGNA [Suspect]
     Active Substance: NILOTINIB
     Dosage: UNK (DOSE REDUCED)
     Route: 065
     Dates: start: 20231101
  3. TASIGNA [Suspect]
     Active Substance: NILOTINIB
     Dosage: 150 MG, QD
     Route: 065

REACTIONS (7)
  - Metabolic dysfunction-associated steatohepatitis [Unknown]
  - Diabetes mellitus [Unknown]
  - Thrombocytopenia [Unknown]
  - Dyslipidaemia [Unknown]
  - Hepatic function abnormal [Recovered/Resolved]
  - Hepatomegaly [Unknown]
  - Off label use [Unknown]
